FAERS Safety Report 18306015 (Version 1)
Quarter: 2020Q3

REPORT INFORMATION
  Report Type: Spontaneous
  Country: US (occurrence: US)
  Receive Date: 20200923
  Receipt Date: 20200923
  Transmission Date: 20201103
  Serious: Yes (Hospitalization)
  Sender: FDA-Public Use
  Company Number: None

PATIENT
  Age: 72 Year
  Sex: Male

DRUGS (1)
  1. CARFILZOMIB (CARFILZOMIB 10MG/VIL INJ) [Suspect]
     Active Substance: CARFILZOMIB
     Indication: PLASMA CELL MYELOMA
     Dates: end: 20200618

REACTIONS (2)
  - Oedema [None]
  - Fluid overload [None]

NARRATIVE: CASE EVENT DATE: 20200618
